FAERS Safety Report 8858594 (Version 2)
Quarter: 2012Q4

REPORT INFORMATION
  Report Type: 
  Country: DE (occurrence: DE)
  Receive Date: 20121024
  Receipt Date: 20121217
  Transmission Date: 20130627
  Serious: No
  Sender: FDA-Public Use
  Company Number: DE-009507513-1210DEU007705

PATIENT
  Age: 47 Year
  Sex: Female

DRUGS (2)
  1. DIPROSONE [Suspect]
  2. PEPPERMINT OIL [Concomitant]
     Route: 048

REACTIONS (4)
  - Oral discomfort [Not Recovered/Not Resolved]
  - Dysgeusia [Not Recovered/Not Resolved]
  - Hypoaesthesia [Not Recovered/Not Resolved]
  - Incorrect route of drug administration [Unknown]
